FAERS Safety Report 19731039 (Version 1)
Quarter: 2021Q3

REPORT INFORMATION
  Report Type: Spontaneous
  Country: CN (occurrence: CN)
  Receive Date: 20210820
  Receipt Date: 20210820
  Transmission Date: 20211014
  Serious: Yes (Hospitalization, Other)
  Sender: FDA-Public Use
  Company Number: CN-ASTRAZENECA-2021A683432

PATIENT
  Age: 32757 Day
  Sex: Female

DRUGS (6)
  1. ACARBOSE. [Suspect]
     Active Substance: ACARBOSE
     Route: 048
  2. DAPAGLIFLOZIN. [Suspect]
     Active Substance: DAPAGLIFLOZIN
     Indication: HYPERGLYCAEMIA
     Route: 048
     Dates: start: 20210101, end: 20210617
  3. SACUBITRIL VALSARTAN SODIUM TABLETS [Suspect]
     Active Substance: SACUBITRIL\VALSARTAN
     Indication: CARDIAC DYSFUNCTION
     Route: 048
     Dates: start: 20200701, end: 20210617
  4. METOPROLOL SUCCINATE. [Suspect]
     Active Substance: METOPROLOL SUCCINATE
     Route: 048
  5. ATORVASTATIN CALCIUM. [Suspect]
     Active Substance: ATORVASTATIN CALCIUM
     Route: 048
  6. RIVAROXABAN [Suspect]
     Active Substance: RIVAROXABAN
     Route: 048

REACTIONS (2)
  - Condition aggravated [Unknown]
  - Renal impairment [Not Recovered/Not Resolved]

NARRATIVE: CASE EVENT DATE: 20210617
